FAERS Safety Report 8281908-6 (Version None)
Quarter: 2012Q2

REPORT INFORMATION
  Report Type: 
  Country: None (occurrence: None)
  Receive Date: 20120410
  Receipt Date: 20120406
  Transmission Date: 20120825
  Serious: Yes (Other)
  Sender: FDA-Public Use
  Company Number: ADR-2011-10896

PATIENT
  Sex: Male

DRUGS (1)
  1. LIORESAL [Suspect]
     Indication: MUSCLE SPASTICITY
     Dosage: MCG, DAILY, INTRATH

REACTIONS (7)
  - CONDITION AGGRAVATED [None]
  - HYPERTONIA [None]
  - THERAPEUTIC RESPONSE UNEXPECTED [None]
  - MUSCLE SPASTICITY [None]
  - GLUCOSE TOLERANCE IMPAIRED [None]
  - URINARY TRACT INFECTION [None]
  - MEDICAL DEVICE COMPLICATION [None]
